FAERS Safety Report 8313391-6 (Version None)
Quarter: 2012Q2

REPORT INFORMATION
  Report Type: 
  Country: None (occurrence: None)
  Receive Date: 20120426
  Receipt Date: 20120419
  Transmission Date: 20120825
  Serious: Yes (Death, Other)
  Sender: FDA-Public Use
  Company Number: PHHY2012GR033779

PATIENT
  Age: 19 Year
  Sex: Female

DRUGS (1)
  1. ZOLEDRONOC ACID [Suspect]
     Indication: HYPERCALCAEMIA

REACTIONS (6)
  - NEOPLASM PROGRESSION [None]
  - HEPATIC LESION [None]
  - DEATH [None]
  - RECTAL HAEMORRHAGE [None]
  - NEOPLASM MALIGNANT [None]
  - NEOPLASM RECURRENCE [None]
